FAERS Safety Report 9264913 (Version 1)
Quarter: 2013Q2

REPORT INFORMATION
  Report Type: Report from Study
  Country: MX (occurrence: MX)
  Receive Date: 20130501
  Receipt Date: 20130501
  Transmission Date: 20140414
  Serious: Yes (Hospitalization, Other)
  Sender: FDA-Public Use
  Company Number: PHHY2013MX042782

PATIENT
  Age: 79 Year
  Sex: Male

DRUGS (3)
  1. GALVUS [Suspect]
     Dosage: UNK UKN, UNK
     Dates: start: 201302
  2. EXFORGE HCT [Suspect]
     Indication: HYPERTENSION
     Dosage: 1 DF (320/10/25MG), DAILY
     Route: 048
     Dates: start: 201302, end: 201303
  3. AMLODIPINE [Concomitant]
     Dosage: 1 DF (5MG), DAILY
     Dates: start: 201302

REACTIONS (2)
  - Arterial occlusive disease [Recovering/Resolving]
  - Renal disorder [Unknown]
